FAERS Safety Report 16653411 (Version 1)
Quarter: 2019Q3

REPORT INFORMATION
  Report Type: Report from Study
  Country: FR (occurrence: FR)
  Receive Date: 20190731
  Receipt Date: 20190731
  Transmission Date: 20191004
  Serious: Yes (Other)
  Sender: FDA-Public Use
  Company Number: FR-TEVA-2019-FR-1084250

PATIENT
  Age: 10 Year
  Sex: Female

DRUGS (1)
  1. CETIRIZINE [Suspect]
     Active Substance: CETIRIZINE HYDROCHLORIDE
     Indication: ACCIDENTAL OVERDOSE
     Dosage: 0.49MG/KG
     Route: 048

REACTIONS (6)
  - Disorientation [Unknown]
  - Speech disorder [Unknown]
  - Toxicity to various agents [Unknown]
  - Accidental overdose [Unknown]
  - Headache [Unknown]
  - Confusional state [Unknown]
